FAERS Safety Report 9377367 (Version 1)
Quarter: 2013Q3

REPORT INFORMATION
  Report Type: Spontaneous
  Country: US (occurrence: US)
  Receive Date: 20130701
  Receipt Date: 20130701
  Transmission Date: 20140515
  Serious: Yes (Other)
  Sender: FDA-Public Use
  Company Number: US-PFIZER INC-2013193286

PATIENT
  Age: 80 Year
  Sex: Male
  Weight: 48 kg

DRUGS (4)
  1. NEURONTIN [Suspect]
     Indication: NEUROPATHY PERIPHERAL
     Dosage: 100 MG, 2X/DAY
     Route: 048
     Dates: start: 2012
  2. NEURONTIN [Suspect]
     Dosage: 200 MG, 2X/DAY
     Route: 048
     Dates: end: 2012
  3. NEURONTIN [Suspect]
     Dosage: 900 MG (3 CAPSULES OF 300MG), 1X/DAY
     Route: 048
     Dates: start: 201305
  4. SINEMET [Concomitant]
     Dosage: UNK

REACTIONS (7)
  - Off label use [Unknown]
  - Urinary retention [Unknown]
  - Feeling hot [Not Recovered/Not Resolved]
  - Body height decreased [Unknown]
  - Insomnia [Unknown]
  - Incontinence [Unknown]
  - Blood test abnormal [Unknown]
